FAERS Safety Report 10158263 (Version 2)
Quarter: 2014Q2

REPORT INFORMATION
  Report Type: Spontaneous
  Country: US (occurrence: US)
  Receive Date: 20140507
  Receipt Date: 20140515
  Transmission Date: 20141212
  Serious: Yes (Other)
  Sender: FDA-Public Use
  Company Number: US-ALEXION-A201401706

PATIENT
  Sex: 0

DRUGS (2)
  1. SOLIRIS 300MG [Suspect]
     Indication: HAEMOLYTIC URAEMIC SYNDROME
     Dosage: UNK
     Route: 042
     Dates: start: 20140427
  2. ZOFRAN                             /00955301/ [Suspect]
     Indication: NAUSEA
     Dosage: UNK
     Route: 065
     Dates: start: 20140427

REACTIONS (8)
  - Respiratory distress [Unknown]
  - Pericardial effusion [Not Recovered/Not Resolved]
  - No therapeutic response [Unknown]
  - Blood pressure increased [Recovered/Resolved]
  - Abdominal pain upper [Not Recovered/Not Resolved]
  - Pyrexia [Recovering/Resolving]
  - Back pain [Recovered/Resolved]
  - Nausea [Not Recovered/Not Resolved]
